FAERS Safety Report 14598103 (Version 1)
Quarter: 2018Q1

REPORT INFORMATION
  Report Type: Spontaneous
  Country: DE (occurrence: DE)
  Receive Date: 20180305
  Receipt Date: 20180305
  Transmission Date: 20180509
  Serious: Yes (Life-Threatening, Hospitalization)
  Sender: FDA-Public Use
  Company Number: DE-LEO PHARMA-307601

PATIENT
  Age: 58 Year
  Sex: Male
  Weight: 74 kg

DRUGS (2)
  1. L-THYROXIN [Concomitant]
     Active Substance: LEVOTHYROXINE SODIUM
     Indication: HYPOTHYROIDISM
     Dosage: 2 SEPARATED DOSES DAILY DOSE: 2 DF DOSAGE FORM EVERY DAY?APPLICATION FOR YEARS
     Route: 048
  2. PROTOPIC [Suspect]
     Active Substance: TACROLIMUS
     Indication: NEURODERMATITIS
     Dosage: 2 SEPERATED DOSES DAILY DOSE: 2 DF DOSAGE FORM EVERY DAY,  0,1% SALBE
     Route: 061
     Dates: start: 20170928

REACTIONS (2)
  - Abscess [Unknown]
  - Appendicitis perforated [Unknown]

NARRATIVE: CASE EVENT DATE: 20171003
